FAERS Safety Report 12675491 (Version 1)
Quarter: 2016Q3

REPORT INFORMATION
  Report Type: Spontaneous
  Country: JP (occurrence: JP)
  Receive Date: 20160823
  Receipt Date: 20160823
  Transmission Date: 20161109
  Serious: Yes (Death, Other)
  Sender: FDA-Public Use
  Company Number: JP-ACCORD-043371

PATIENT
  Age: 17 Year
  Sex: Male

DRUGS (8)
  1. CYCLOPHOSPHAMIDE/CYCLOPHOSPHAMIDE MONOHYDRATE [Suspect]
     Active Substance: CYCLOPHOSPHAMIDE
     Indication: LEUKOENCEPHALOPATHY
  2. CICLOSPORIN [Suspect]
     Active Substance: CYCLOSPORINE
     Indication: HISTIOCYTOSIS HAEMATOPHAGIC
  3. CYTARABINE/CYTARABINE HYDROCHLORIDE/CYTARABINE OCFOSFATE [Suspect]
     Active Substance: CYTARABINE
     Indication: PERIPHERAL T-CELL LYMPHOMA UNSPECIFIED
  4. DEXAMETHASONE. [Suspect]
     Active Substance: DEXAMETHASONE
     Indication: LEUKOENCEPHALOPATHY
  5. ETOPOSIDE. [Suspect]
     Active Substance: ETOPOSIDE
     Indication: HISTIOCYTOSIS HAEMATOPHAGIC
     Dosage: 120 MG/BODY
  6. TACROLIMUS. [Suspect]
     Active Substance: TACROLIMUS
     Indication: HISTIOCYTOSIS HAEMATOPHAGIC
  7. METHYLPREDNISOLONE. [Suspect]
     Active Substance: METHYLPREDNISOLONE
     Indication: LEUKOENCEPHALOPATHY
  8. METHOTREXATE. [Suspect]
     Active Substance: METHOTREXATE
     Indication: PERIPHERAL T-CELL LYMPHOMA UNSPECIFIED
     Dosage: 5.6 G/BODY

REACTIONS (3)
  - Drug ineffective [Unknown]
  - Peripheral T-cell lymphoma unspecified [Unknown]
  - Sepsis [Fatal]
